FAERS Safety Report 7909106-3 (Version None)
Quarter: 2011Q4

REPORT INFORMATION
  Report Type: 
  Country: None (occurrence: None)
  Receive Date: 20111111
  Receipt Date: 20111108
  Transmission Date: 20120403
  Serious: Yes (Other)
  Sender: FDA-Public Use
  Company Number: US-PFIZER INC-2011237315

PATIENT
  Sex: Male
  Weight: 74.83 kg

DRUGS (4)
  1. KLONOPIN [Concomitant]
     Indication: ANXIETY
     Dosage: 1 MG
  2. PRISTIQ [Suspect]
     Indication: DEPRESSION
     Dosage: 100 MG
     Dates: start: 20100601
  3. PRISTIQ [Suspect]
     Dosage: UNK
     Dates: end: 20100101
  4. EFFEXOR XR [Suspect]
     Indication: DEPRESSION
     Dosage: 225 MG
     Dates: start: 19950101

REACTIONS (4)
  - TONGUE DISORDER [None]
  - VISION BLURRED [None]
  - TEMPERATURE INTOLERANCE [None]
  - DYSKINESIA [None]
